FAERS Safety Report 8622614-5 (Version None)
Quarter: 2012Q3

REPORT INFORMATION
  Report Type: 
  Country: None (occurrence: None)
  Receive Date: 20120813
  Receipt Date: 20120726
  Transmission Date: 20120928
  Serious: Yes (Death)
  Sender: FDA-Public Use
  Company Number: 2012033041

PATIENT
  Age: 82 Year
  Sex: Male

DRUGS (3)
  1. PRIVIGEN [Suspect]
     Indication: SECONDARY IMMUNODEFICIENCY
     Dosage: 10 G, QD, INTRAVENOUS
     Route: 042
     Dates: start: 20111010
  2. B12 ROTEXMEDICA (CYANOCOBALAMIN) [Concomitant]
  3. GABAPENTIN [Concomitant]

REACTIONS (1)
  - DEATH [None]
